FAERS Safety Report 21990041 (Version 5)
Quarter: 2024Q3

REPORT INFORMATION
  Report Type: Spontaneous
  Country: US (occurrence: US)
  Receive Date: 20230214
  Receipt Date: 20240930
  Transmission Date: 20241016
  Serious: No
  Sender: PFIZER
  Company Number: US-PFIZER INC-PV202300026374

PATIENT
  Age: 54 Year
  Sex: Female
  Weight: 71.202 kg

DRUGS (6)
  1. PREMARIN [Suspect]
     Active Substance: ESTROGENS, CONJUGATED
     Indication: Menopausal symptoms
     Dosage: 2X/WEEK (0.25-0.5 GM -APPLICATOR FULL 2 TIMES A WEEK)
     Route: 067
  2. PREMARIN [Suspect]
     Active Substance: ESTROGENS, CONJUGATED
     Dosage: AS NEEDED (AS DIRECTED 1-3 TIMES A WEEK PRN)
  3. PREMARIN [Suspect]
     Active Substance: ESTROGENS, CONJUGATED
     Dosage: 2X/WEEK (0.65 MG/GM, 0.25 - 0.5 GM - APPLICATOR FULL 2 TIMES A WEEK)
     Route: 067
  4. PREMARIN [Suspect]
     Active Substance: ESTROGENS, CONJUGATED
     Dosage: 1-2 TIMES A WEEK, LITTLE 1 MG APPLICATOR
  5. PREMARIN [Suspect]
     Active Substance: ESTROGENS, CONJUGATED
     Dosage: WEEKLY
  6. VALTREX [Concomitant]
     Active Substance: VALACYCLOVIR HYDROCHLORIDE
     Indication: Genital herpes
     Dosage: 500 MG, 1X/DAY

REACTIONS (4)
  - Illness [Unknown]
  - COVID-19 [Unknown]
  - Off label use [Unknown]
  - Product prescribing error [Unknown]

NARRATIVE: CASE EVENT DATE: 20221201
